FAERS Safety Report 5979832-4 (Version None)
Quarter: 2008Q4

REPORT INFORMATION
  Report Type: 
  Country: None (occurrence: None)
  Receive Date: 20081128
  Receipt Date: 20081111
  Transmission Date: 20090506
  Serious: Yes (Death, Hospitalization)
  Sender: FDA-Public Use
  Company Number: 004858

PATIENT
  Age: 82 Year
  Sex: Female

DRUGS (12)
  1. PLETAL [Suspect]
     Indication: ARTERIOSCLEROSIS OBLITERANS
     Dosage: 200 MG, DAILY DOSE, ORAL
     Route: 048
     Dates: start: 20071102, end: 20080323
  2. LOSARTAN POTASSIUM [Suspect]
     Indication: HYPERTENSION
     Dosage: 25 MG, DAILY DOSE, ORAL
     Route: 048
     Dates: start: 20060530, end: 20080323
  3. HI-Z (GAMMA ORYZANOL) [Concomitant]
  4. DOGMATYL (SULPIRIDE) [Concomitant]
  5. FAMOTIDINE [Concomitant]
  6. DEPAS (ETIZOLAM) [Concomitant]
  7. HALCION [Concomitant]
  8. LASIX [Concomitant]
  9. BROCAL (CALCIUM BROMIDE) INJECTION [Concomitant]
  10. ADOAIR (SALMETEROL XINAFOATE_FLUTICASONE PROPINATE) [Concomitant]
  11. ASPIRIN [Concomitant]
  12. GASTER D (FAMOTIDINE) TABLET [Concomitant]

REACTIONS (6)
  - ASTHMA [None]
  - ATRIAL FIBRILLATION [None]
  - BUNDLE BRANCH BLOCK [None]
  - CHEST PAIN [None]
  - MITRAL VALVE INCOMPETENCE [None]
  - TACHYCARDIA PAROXYSMAL [None]
